FAERS Safety Report 10110488 (Version 2)
Quarter: 2014Q3

REPORT INFORMATION
  Report Type: Spontaneous
  Country: US (occurrence: None)
  Receive Date: 20140421
  Receipt Date: 20140722
  Transmission Date: 20150326
  Serious: No
  Sender: FDA-Public Use
  Company Number: AEGR000340

PATIENT
  Age: 55 Year
  Sex: Female
  Weight: 73 kg

DRUGS (3)
  1. JUXTAPID [Suspect]
     Active Substance: LOMITAPIDE MESYLATE
     Indication: CORONARY ARTERY DISEASE
     Route: 048
     Dates: start: 20140305
  2. JUXTAPID [Suspect]
     Active Substance: LOMITAPIDE MESYLATE
     Indication: TYPE IIA HYPERLIPIDAEMIA
     Route: 048
     Dates: start: 20140305
  3. LIVALO (PITAVASTATIN CALCIUM) [Concomitant]

REACTIONS (2)
  - Headache [None]
  - Product used for unknown indication [None]

NARRATIVE: CASE EVENT DATE: 20140219
